FAERS Safety Report 5030738-7 (Version None)
Quarter: 2006Q2

REPORT INFORMATION
  Report Type: 
  Country: None (occurrence: None)
  Receive Date: 20060615
  Receipt Date: 20060407
  Transmission Date: 20061013
  Serious: Yes (Hospitalization)
  Sender: FDA-Public Use
  Company Number: 222023

PATIENT
  Age: 48 Year
  Sex: Female
  Weight: 70 kg

DRUGS (6)
  1. HERCEPTIN [Suspect]
     Indication: BREAST CANCER
     Dosage: 560 MG, Q3W, INTRAVENOUS
     Route: 042
     Dates: start: 20060111, end: 20060111
  2. DOCETAXEL(DOCETAXEL) [Suspect]
     Indication: BREAST CANCER
     Dosage: 75 MG/M2, UNK, INTRAVENOUS
     Route: 042
     Dates: start: 20050415, end: 20050715
  3. DOXORUBICIN HCL [Suspect]
     Indication: BREAST CANCER
     Dosage: 50 MG/M2, UNK, INTRAVENOUS
     Route: 042
     Dates: start: 20050415, end: 20050715
  4. CYCLOPHOSPHAMIDE [Suspect]
     Indication: BREAST CANCER
     Dosage: 500 MG/M2, UNK, INTRAVENOUS
     Route: 042
     Dates: start: 20050415, end: 20050715
  5. ARIMIDEX [Concomitant]
  6. CIPRAMIL (CITALOPRAM) [Concomitant]

REACTIONS (11)
  - BLOOD CHOLESTEROL INCREASED [None]
  - CARDIAC HYPERTROPHY [None]
  - CORONARY ARTERY DISEASE [None]
  - DILATATION ATRIAL [None]
  - ENDOCARDITIS [None]
  - FIBRIN D DIMER INCREASED [None]
  - METASTASES TO LUNG [None]
  - PAPILLARY MUSCLE RUPTURE [None]
  - PLEURAL EFFUSION [None]
  - PULMONARY FIBROSIS [None]
  - PULMONARY HYPERTENSION [None]
